FAERS Safety Report 25905991 (Version 2)
Quarter: 2025Q4

REPORT INFORMATION
  Report Type: Spontaneous
  Country: CA (occurrence: CA)
  Receive Date: 20251010
  Receipt Date: 20251016
  Transmission Date: 20260118
  Serious: Yes (Hospitalization)
  Sender: MYLAN
  Company Number: CA-MYLANLABS-2025M1086112

PATIENT
  Age: 15 Year
  Sex: Female

DRUGS (28)
  1. CELECOXIB [Suspect]
     Active Substance: CELECOXIB
     Indication: Neuralgia
     Dosage: UNK
  2. CELECOXIB [Suspect]
     Active Substance: CELECOXIB
     Dosage: UNK
     Route: 065
  3. CELECOXIB [Suspect]
     Active Substance: CELECOXIB
     Dosage: UNK
     Route: 065
  4. CELECOXIB [Suspect]
     Active Substance: CELECOXIB
     Dosage: UNK
  5. GABAPENTIN [Suspect]
     Active Substance: GABAPENTIN
     Indication: Neuralgia
     Dosage: UNK
  6. GABAPENTIN [Suspect]
     Active Substance: GABAPENTIN
     Dosage: UNK
     Route: 065
  7. GABAPENTIN [Suspect]
     Active Substance: GABAPENTIN
     Dosage: UNK
     Route: 065
  8. GABAPENTIN [Suspect]
     Active Substance: GABAPENTIN
     Dosage: UNK
  9. KETAMINE [Suspect]
     Active Substance: KETAMINE
     Indication: Neuralgia
     Dosage: LOW-DOSE, INFUSION
  10. KETAMINE [Suspect]
     Active Substance: KETAMINE
     Dosage: LOW-DOSE, INFUSION
     Route: 065
  11. KETAMINE [Suspect]
     Active Substance: KETAMINE
     Dosage: LOW-DOSE, INFUSION
     Route: 065
  12. KETAMINE [Suspect]
     Active Substance: KETAMINE
     Dosage: LOW-DOSE, INFUSION
  13. HYDROMORPHONE [Suspect]
     Active Substance: HYDROMORPHONE
     Indication: Neuralgia
     Dosage: UNK, INFUSION
  14. HYDROMORPHONE [Suspect]
     Active Substance: HYDROMORPHONE
     Dosage: UNK, INFUSION
     Route: 065
  15. HYDROMORPHONE [Suspect]
     Active Substance: HYDROMORPHONE
     Dosage: UNK, INFUSION
     Route: 065
  16. HYDROMORPHONE [Suspect]
     Active Substance: HYDROMORPHONE
     Dosage: UNK, INFUSION
  17. AMITRIPTYLINE [Suspect]
     Active Substance: AMITRIPTYLINE
     Indication: Neuralgia
     Dosage: UNK
  18. AMITRIPTYLINE [Suspect]
     Active Substance: AMITRIPTYLINE
     Dosage: UNK
     Route: 065
  19. AMITRIPTYLINE [Suspect]
     Active Substance: AMITRIPTYLINE
     Dosage: UNK
     Route: 065
  20. AMITRIPTYLINE [Suspect]
     Active Substance: AMITRIPTYLINE
     Dosage: UNK
  21. CLONIDINE [Suspect]
     Active Substance: CLONIDINE
     Indication: Neuralgia
     Dosage: UNK, ENTERAL
  22. CLONIDINE [Suspect]
     Active Substance: CLONIDINE
     Dosage: UNK, ENTERAL
     Route: 065
  23. CLONIDINE [Suspect]
     Active Substance: CLONIDINE
     Dosage: UNK, ENTERAL
     Route: 065
  24. CLONIDINE [Suspect]
     Active Substance: CLONIDINE
     Dosage: UNK, ENTERAL
  25. MAGNESIUM OXIDE [Suspect]
     Active Substance: MAGNESIUM OXIDE
     Indication: Neuralgia
     Dosage: UNK
  26. MAGNESIUM OXIDE [Suspect]
     Active Substance: MAGNESIUM OXIDE
     Dosage: UNK
     Route: 065
  27. MAGNESIUM OXIDE [Suspect]
     Active Substance: MAGNESIUM OXIDE
     Dosage: UNK
     Route: 065
  28. MAGNESIUM OXIDE [Suspect]
     Active Substance: MAGNESIUM OXIDE
     Dosage: UNK

REACTIONS (2)
  - Drug ineffective [Unknown]
  - Product prescribing issue [Unknown]
